FAERS Safety Report 6221148-5 (Version None)
Quarter: 2009Q2

REPORT INFORMATION
  Report Type: 
  Country: None (occurrence: None)
  Receive Date: 20090608
  Receipt Date: 20090527
  Transmission Date: 20091009
  Serious: Yes (Other)
  Sender: FDA-Public Use
  Company Number: 8047175

PATIENT
  Sex: Male

DRUGS (3)
  1. KEPPRA [Suspect]
  2. VALIUM [Concomitant]
  3. LAMOTRIGINE [Concomitant]

REACTIONS (6)
  - ASTHENIA [None]
  - DEPRESSION [None]
  - FATIGUE [None]
  - SOCIAL AVOIDANT BEHAVIOUR [None]
  - SOMNOLENCE [None]
  - SUICIDAL IDEATION [None]
